FAERS Safety Report 7275293 (Version 2)
Quarter: 2018Q3

REPORT INFORMATION
  Report Type: Spontaneous
  Country: DE (occurrence: DE)
  Receive Date: 20100210
  Receipt Date: 20180824
  Transmission Date: 20181010
  Serious: Yes (Life-Threatening, Hospitalization, Other)
  Sender: FDA-Public Use
  Company Number: DE-BRISTOL-MYERS SQUIBB COMPANY-14963813

PATIENT
  Age: 50 Year
  Sex: Female
  Weight: 65 kg

DRUGS (3)
  1. OLANZAPINE. [Concomitant]
     Active Substance: OLANZAPINE
     Indication: PRODUCT USED FOR UNKNOWN INDICATION
     Dosage: 20 MG, QD
     Route: 065
  2. CARBIMAZOLE [Concomitant]
     Active Substance: CARBIMAZOLE
     Indication: PRODUCT USED FOR UNKNOWN INDICATION
     Dosage: 5 MG, BID
     Route: 065
  3. METFORMIN HYDROCHLORIDE. [Suspect]
     Active Substance: METFORMIN HYDROCHLORIDE
     Indication: PRODUCT USED FOR UNKNOWN INDICATION
     Dosage: 1 DF, TOTAL
     Route: 065

REACTIONS (18)
  - Suicide attempt [Recovered/Resolved]
  - Lactic acidosis [Recovered/Resolved]
  - Intentional overdose [Recovered/Resolved]
  - Rhabdomyolysis [Unknown]
  - Toxicity to various agents [Recovered/Resolved]
  - Renal failure [Recovering/Resolving]
  - Systemic inflammatory response syndrome [Recovering/Resolving]
  - Depressed level of consciousness [Recovering/Resolving]
  - Pleural effusion [Recovering/Resolving]
  - Cardiovascular insufficiency [Recovering/Resolving]
  - Stupor [Recovering/Resolving]
  - Tachypnoea [Recovering/Resolving]
  - Capillary leak syndrome [Recovering/Resolving]
  - Agitation [Recovering/Resolving]
  - Restlessness [Recovering/Resolving]
  - Respiratory failure [Recovering/Resolving]
  - Pulmonary oedema [Recovering/Resolving]
  - Pallor [Recovering/Resolving]

NARRATIVE: CASE EVENT DATE: 20080423
